FAERS Safety Report 6653335-6 (Version None)
Quarter: 2010Q1

REPORT INFORMATION
  Report Type: 
  Country: None (occurrence: None)
  Receive Date: 20100326
  Receipt Date: 20100319
  Transmission Date: 20100710
  Serious: Yes (Other)
  Sender: FDA-Public Use
  Company Number: FR-ROCHE-687456

PATIENT
  Sex: Male

DRUGS (4)
  1. OSELTAMIVIR PHOSPHATE [Suspect]
     Route: 065
     Dates: start: 20100215, end: 20100217
  2. OSELTAMIVIR PHOSPHATE [Suspect]
     Route: 065
     Dates: start: 20100218
  3. ACETAMINOPHEN [Concomitant]
     Dates: start: 20100215
  4. ASPEGIC 1000 [Concomitant]
     Dates: start: 20100215

REACTIONS (3)
  - BACTERIAL INFECTION [None]
  - DRUG INEFFECTIVE [None]
  - LABORATORY TEST ABNORMAL [None]
